FAERS Safety Report 4393594-6 (Version None)
Quarter: 2004Q3

REPORT INFORMATION
  Report Type: 
  Country: None (occurrence: None)
  Receive Date: 20040709
  Receipt Date: 20040629
  Transmission Date: 20050211
  Serious: Yes (Other)
  Sender: FDA-Public Use
  Company Number: DE-ROCHE-372741

PATIENT
  Age: 51 Year
  Sex: Female

DRUGS (1)
  1. ROCEPHIN [Suspect]
     Indication: LYME DISEASE
     Route: 042

REACTIONS (1)
  - DEAFNESS [None]
